FAERS Safety Report 14814332 (Version 3)
Quarter: 2019Q3

REPORT INFORMATION
  Report Type: Spontaneous
  Country: US (occurrence: US)
  Receive Date: 20180426
  Receipt Date: 20190904
  Transmission Date: 20191004
  Serious: Yes (Other)
  Sender: FDA-Public Use
  Company Number: US-PTC THERAPEUTICS, INC.-US-2018PTC000300

PATIENT
  Age: 15 Year
  Sex: Male

DRUGS (2)
  1. EMFLAZA [Suspect]
     Active Substance: DEFLAZACORT
     Indication: DUCHENNE MUSCULAR DYSTROPHY
     Dosage: 30 MG, QD
     Route: 048
     Dates: start: 20171030, end: 20180315
  2. EMFLAZA [Suspect]
     Active Substance: DEFLAZACORT
     Dosage: 30 MG, QD
     Route: 048
     Dates: start: 20170809

REACTIONS (2)
  - Self-injurious ideation [Recovering/Resolving]
  - Depression [Recovering/Resolving]

NARRATIVE: CASE EVENT DATE: 20180216
